FAERS Safety Report 10188141 (Version 1)
Quarter: 2014Q2

REPORT INFORMATION
  Report Type: Spontaneous
  Country: FR (occurrence: FR)
  Receive Date: 20140522
  Receipt Date: 20140522
  Transmission Date: 20141212
  Serious: Yes (Other)
  Sender: FDA-Public Use
  Company Number: FR-PFIZER INC-2014134136

PATIENT
  Age: 66 Year
  Sex: Male

DRUGS (4)
  1. SUTENT [Suspect]
     Dosage: 50 MG, CYCLIC ONCE DAILY (4 WEEKS ON, 2 WEEKS OFF)
     Route: 048
     Dates: start: 20140207, end: 20140224
  2. DUROGESIC [Concomitant]
     Dosage: 75 UG, UNK
     Route: 003
  3. DUROGESIC [Concomitant]
     Dosage: 100 ?G/H (16.8 MG/42 CM^2), EVERY 3 DAYS
     Route: 003
     Dates: start: 20140207
  4. ACTISKENAN [Concomitant]
     Dosage: FROM 1 TO 6 CAPSULE (20 MG CAPSULE) DAILY
     Route: 048
     Dates: start: 20131003

REACTIONS (2)
  - Urticaria [Recovered/Resolved]
  - Hypertension [Recovering/Resolving]
